FAERS Safety Report 5425785-7 (Version None)
Quarter: 2007Q3

REPORT INFORMATION
  Report Type: 
  Country: None (occurrence: None)
  Receive Date: 20070825
  Receipt Date: 20070821
  Transmission Date: 20080115
  Serious: Yes (Hospitalization)
  Sender: FDA-Public Use
  Company Number: CA-MERCK-0708CAN00084

PATIENT
  Sex: Female

DRUGS (2)
  1. INVANZ [Suspect]
     Indication: WOUND INFECTION
     Route: 042
  2. [THERAPY UNSPECIFIED] [Concomitant]
     Route: 065

REACTIONS (1)
  - MYASTHENIA GRAVIS [None]
